FAERS Safety Report 8358739-1 (Version None)
Quarter: 2012Q2

REPORT INFORMATION
  Report Type: 
  Country: None (occurrence: None)
  Receive Date: 20120514
  Receipt Date: 20120503
  Transmission Date: 20120825
  Serious: Yes (Hospitalization)
  Sender: FDA-Public Use
  Company Number: CO-GENZYME-CERZ-1002496

PATIENT
  Sex: Male
  Weight: 31 kg

DRUGS (1)
  1. CEREZYME [Suspect]
     Indication: GAUCHER'S DISEASE
     Dosage: 3 VIALS, Q2W
     Route: 042

REACTIONS (2)
  - VOMITING [None]
  - SYNCOPE [None]
